FAERS Safety Report 5690867-1 (Version None)
Quarter: 2008Q2

REPORT INFORMATION
  Report Type: 
  Country: None (occurrence: None)
  Receive Date: 20080401
  Receipt Date: 20080321
  Transmission Date: 20081010
  Serious: Yes (Other)
  Sender: FDA-Public Use
  Company Number: JP-JNJFOC-20080303971

PATIENT
  Age: 45 Year
  Sex: Female

DRUGS (4)
  1. RISPERDAL [Suspect]
     Indication: DELUSION
     Route: 048
  2. RISPERDAL [Suspect]
     Indication: HALLUCINATION
     Route: 048
  3. HALOMONTH [Suspect]
     Indication: DELUSION
     Route: 030
  4. HALOMONTH [Suspect]
     Indication: HALLUCINATION
     Route: 030

REACTIONS (4)
  - ELECTROCARDIOGRAM QT PROLONGED [None]
  - HYPOXIC ENCEPHALOPATHY [None]
  - VENTRICULAR FIBRILLATION [None]
  - VENTRICULAR TACHYCARDIA [None]
